FAERS Safety Report 8390205-X (Version None)
Quarter: 2012Q2

REPORT INFORMATION
  Report Type: 
  Country: None (occurrence: None)
  Receive Date: 20120529
  Receipt Date: 20120515
  Transmission Date: 20120825
  Serious: Yes (Hospitalization, Other)
  Sender: FDA-Public Use
  Company Number: US-MYLANLABS-2009AL002255

PATIENT
  Sex: Male
  Weight: 135.4 kg

DRUGS (55)
  1. CAPSAICIN [Concomitant]
  2. VERAPAMIL HCL [Concomitant]
  3. ALBUTEROL [Concomitant]
  4. SENNA-MINT WAF [Concomitant]
  5. SIMVASTATIN [Concomitant]
  6. PEPCID [Concomitant]
  7. CARDIZEM [Concomitant]
  8. WARFARIN SODIUM [Concomitant]
  9. ATROVENT [Concomitant]
  10. FUROSEMIDE [Concomitant]
  11. SENNOSIDES A+B [Concomitant]
  12. DIGOXIN [Suspect]
     Indication: PRODUCT USED FOR UNKNOWN INDICATION
     Route: 048
     Dates: start: 20071030, end: 20080401
  13. COUMADIN [Concomitant]
  14. DOCUSATE [Concomitant]
  15. DILTIAZEM [Concomitant]
  16. EPOETIN ALFA [Concomitant]
  17. LEVOTHYROXINE SODIUM [Concomitant]
  18. DOLASETRON [Concomitant]
  19. LOVASTATIN [Concomitant]
  20. ACETAMINOPHEN [Concomitant]
  21. IPRATROPIUM BROMIDE [Concomitant]
  22. MOXIFLOXACIN [Concomitant]
  23. ACETYLCYSTEINE [Concomitant]
  24. HYDROCORTISONE [Concomitant]
  25. LISINOPRIL [Concomitant]
  26. LORTAB [Concomitant]
  27. PERCOCET [Concomitant]
  28. TERBINAFINE HCL [Concomitant]
  29. OXYCODONE HCL [Concomitant]
  30. FLOMAX [Concomitant]
  31. PRILOSEC [Concomitant]
  32. LORTAB [Concomitant]
  33. IRON [Concomitant]
  34. ALENDRONATE SODIUM [Concomitant]
  35. AMIODARONE HCL [Concomitant]
  36. AZITHROMYCIN [Concomitant]
  37. CEFEPIME [Concomitant]
  38. CORDARONE [Concomitant]
  39. TERAZOSIN HCL [Concomitant]
  40. ZESTRIL [Concomitant]
  41. PREDNISONE TAB [Concomitant]
  42. METOPROLOL TARTRATE [Concomitant]
  43. TAMSULOSIN HCL [Concomitant]
  44. ALLOPURINOL [Concomitant]
  45. LEVALBUTEROL HCL [Concomitant]
  46. JANUVIA [Concomitant]
  47. LIPITOR [Concomitant]
  48. LOVASTATIN [Concomitant]
  49. METHYL SALICYLATE [Concomitant]
  50. SYNTHROID [Concomitant]
  51. OMEPRAZOLE [Concomitant]
  52. ACETAMINOPHEN W/ CODEINE [Concomitant]
  53. ASPIRIN [Concomitant]
  54. CIPROFLOXACIN HCL [Concomitant]
  55. HYDROCODONE BITARTRATE [Concomitant]

REACTIONS (104)
  - ATRIAL FIBRILLATION [None]
  - CARDIAC PACEMAKER INSERTION [None]
  - OSTEONECROSIS [None]
  - HYPOTENSION [None]
  - CARDIOMYOPATHY [None]
  - ARRHYTHMIA SUPRAVENTRICULAR [None]
  - CHRONIC OBSTRUCTIVE PULMONARY DISEASE [None]
  - INTERNATIONAL NORMALISED RATIO INCREASED [None]
  - COAGULOPATHY [None]
  - SOMNOLENCE [None]
  - MUSCULOSKELETAL PAIN [None]
  - ELECTROCARDIOGRAM ABNORMAL [None]
  - ULTRASOUND DOPPLER ABNORMAL [None]
  - CARDIAC MURMUR [None]
  - PULMONARY CONGESTION [None]
  - FEMUR FRACTURE [None]
  - ARRHYTHMIA [None]
  - PULMONARY EMBOLISM [None]
  - BRADYCARDIA [None]
  - HYPERTENSION [None]
  - HYPERCHOLESTEROLAEMIA [None]
  - ASTHENIA [None]
  - MOBILITY DECREASED [None]
  - HEART RATE IRREGULAR [None]
  - CHEST PAIN [None]
  - JOINT ARTHROPLASTY [None]
  - HYPOTHYROIDISM [None]
  - HODGKIN'S DISEASE [None]
  - HYPOXIA [None]
  - ATRIAL FLUTTER [None]
  - ATELECTASIS [None]
  - NON-HODGKIN'S LYMPHOMA [None]
  - NAUSEA [None]
  - SLEEP APNOEA SYNDROME [None]
  - JOINT RANGE OF MOTION DECREASED [None]
  - DYSURIA [None]
  - SKIN DISORDER [None]
  - RALES [None]
  - CONTUSION [None]
  - CARDIOMEGALY [None]
  - TENDERNESS [None]
  - DEEP VEIN THROMBOSIS [None]
  - OEDEMA PERIPHERAL [None]
  - COUGH [None]
  - ANGINA PECTORIS [None]
  - INTRACARDIAC THROMBUS [None]
  - PLEURAL EFFUSION [None]
  - OBESITY [None]
  - RENAL FAILURE CHRONIC [None]
  - HYPERTENSIVE HEART DISEASE [None]
  - FATIGUE [None]
  - CONSTIPATION [None]
  - ARTHRALGIA [None]
  - ACTINIC KERATOSIS [None]
  - BREATH SOUNDS ABNORMAL [None]
  - DILATATION VENTRICULAR [None]
  - ECONOMIC PROBLEM [None]
  - ILL-DEFINED DISORDER [None]
  - MYOCARDIAL INFARCTION [None]
  - HEART RATE INCREASED [None]
  - DYSPNOEA [None]
  - PATHOLOGICAL FRACTURE [None]
  - CARDIAC FAILURE CONGESTIVE [None]
  - CORONARY ARTERY DISEASE [None]
  - BENIGN PROSTATIC HYPERPLASIA [None]
  - PAIN IN EXTREMITY [None]
  - SENSORY DISTURBANCE [None]
  - BEDRIDDEN [None]
  - ABDOMINAL DISTENSION [None]
  - LUNG INFILTRATION [None]
  - EXOSTOSIS [None]
  - INJURY [None]
  - SURGERY [None]
  - PULMONARY FIBROSIS [None]
  - OSTEOPOROSIS [None]
  - GASTROOESOPHAGEAL REFLUX DISEASE [None]
  - CHEST DISCOMFORT [None]
  - HIP ARTHROPLASTY [None]
  - EXERCISE TOLERANCE DECREASED [None]
  - BALANCE DISORDER [None]
  - DYSPHAGIA [None]
  - GASTROINTESTINAL MOTILITY DISORDER [None]
  - VENTRICULAR DYSFUNCTION [None]
  - TENDON RUPTURE [None]
  - CYST [None]
  - SPINAL OSTEOARTHRITIS [None]
  - DIAGNOSTIC PROCEDURE [None]
  - ORTHOPNOEA [None]
  - PULMONARY TOXICITY [None]
  - LYMPHOMA [None]
  - TACHYCARDIA [None]
  - POLYMYALGIA RHEUMATICA [None]
  - GOUT [None]
  - LUNG DISORDER [None]
  - ROTATOR CUFF SYNDROME [None]
  - EMPHYSEMA [None]
  - ARTHROPATHY [None]
  - ARTHRITIS [None]
  - TOXICITY TO VARIOUS AGENTS [None]
  - RESPIRATORY FAILURE [None]
  - NEOPLASM SKIN [None]
  - ISCHAEMIA [None]
  - HYPERLIPIDAEMIA [None]
  - PALPITATIONS [None]
